FAERS Safety Report 11065976 (Version 1)
Quarter: 2015Q2

REPORT INFORMATION
  Report Type: Spontaneous
  Country: US (occurrence: None)
  Receive Date: 20150423
  Receipt Date: 20150423
  Transmission Date: 20150821
  Serious: Yes (Life-Threatening, Hospitalization)
  Sender: FDA-Public Use
  Company Number: 1713747-2014-999202

PATIENT
  Age: 71 Year
  Sex: Female
  Weight: 112 kg

DRUGS (20)
  1. ULORIC [Concomitant]
     Active Substance: FEBUXOSTAT
  2. FRESENIUS DIALYZER [Concomitant]
     Active Substance: DEVICE
  3. NATURALYTE BICARBONATE [Concomitant]
     Active Substance: SODIUM BICARBONATE
  4. OMEPRAZOLE. [Concomitant]
     Active Substance: OMEPRAZOLE
  5. HYDROXYZINE HCL [Concomitant]
     Active Substance: HYDROXYZINE HYDROCHLORIDE
  6. 0.9% SODIUM CHLORIDE INJECTION, USP [Suspect]
     Active Substance: SODIUM CHLORIDE
     Indication: NEPHROPATHY
     Dosage: HEMODIALYSIS
     Dates: start: 20141113
  7. 2008X HEMODIALYSIS SYSTEM [Concomitant]
  8. METHOCARBAMOL. [Concomitant]
     Active Substance: METHOCARBAMOL
  9. TRAMADOL [Concomitant]
     Active Substance: TRAMADOL
  10. NOVOLOG [Concomitant]
     Active Substance: INSULIN ASPART
  11. AMITRIPTYLINE [Concomitant]
     Active Substance: AMITRIPTYLINE
  12. ANRO [Concomitant]
  13. ASPIRIN. [Concomitant]
     Active Substance: ASPIRIN
  14. JANUVLA [Concomitant]
  15. TRIAMCINOLONE ACETONIDE 0.1% OINTMENT [Concomitant]
  16. FMC BLOOD LINES [Concomitant]
     Active Substance: DEVICE
  17. METOPROLOL TARTRATE. [Concomitant]
     Active Substance: METOPROLOL TARTRATE
  18. CEPHALEXIN. [Concomitant]
     Active Substance: CEPHALEXIN
  19. NATURALYTE ACID CONCENTRATE [Concomitant]
  20. LEVOTHYROXINE [Concomitant]
     Active Substance: LEVOTHYROXINE

REACTIONS (3)
  - Chronic obstructive pulmonary disease [None]
  - Pulmonary embolism [None]
  - Thrombosis in device [None]

NARRATIVE: CASE EVENT DATE: 20141113
